FAERS Safety Report 8297722-1 (Version None)
Quarter: 2012Q2

REPORT INFORMATION
  Report Type: 
  Country: None (occurrence: None)
  Receive Date: 20120419
  Receipt Date: 20120416
  Transmission Date: 20120825
  Serious: Yes (Hospitalization, Other)
  Sender: FDA-Public Use
  Company Number: US-PFIZER INC-2012067007

PATIENT
  Sex: Male
  Weight: 170 kg

DRUGS (7)
  1. NEURONTIN [Suspect]
     Indication: INTERVERTEBRAL DISC PROTRUSION
     Dosage: 60 ML, UNK
     Route: 048
     Dates: start: 20050101
  2. LISINOPRIL [Concomitant]
     Indication: BLOOD PRESSURE ABNORMAL
     Dosage: 10 MG, DAILY
  3. MINOCYCLINE [Concomitant]
     Indication: SKIN DISCOMFORT
     Dosage: 100 MG, DAILY
  4. TOPIRAMATE [Concomitant]
     Indication: NEUROPATHY PERIPHERAL
     Dosage: 100 MG, DAILY
  5. METHOCARBAMOL [Concomitant]
     Indication: MUSCLE RELAXANT THERAPY
     Dosage: 500 MG, DAILY
  6. POTASSIUM CITRATE [Concomitant]
     Indication: RENAL DISORDER
     Dosage: 1080 MG, 2X/DAY
  7. ALLOPURINOL [Concomitant]
     Indication: GOUT
     Dosage: 300 MG, DAILY

REACTIONS (7)
  - BEDRIDDEN [None]
  - THROMBOSIS [None]
  - DYSPNOEA [None]
  - PULMONARY THROMBOSIS [None]
  - SUICIDAL IDEATION [None]
  - PROTEIN C DEFICIENCY [None]
  - ABASIA [None]
